FAERS Safety Report 22086880 (Version 2)
Quarter: 2023Q2

REPORT INFORMATION
  Report Type: Report from Study
  Country: GB (occurrence: GB)
  Receive Date: 20230312
  Receipt Date: 20230605
  Transmission Date: 20230722
  Serious: Yes (Other)
  Sender: FDA-Public Use
  Company Number: GB-002147023-NVSC2022GB264939

PATIENT
  Age: 55 Year
  Sex: Female

DRUGS (1)
  1. KISQALI [Suspect]
     Active Substance: RIBOCICLIB
     Indication: Breast cancer
     Dosage: UNK (2ND LINE PLUS FULVESTRANT)
     Route: 065
     Dates: start: 202207

REACTIONS (16)
  - Horner^s syndrome [Unknown]
  - Cerebral haemorrhage [Unknown]
  - Lymphoedema [Unknown]
  - Weight increased [Unknown]
  - Brain fog [Unknown]
  - Menopausal symptoms [Unknown]
  - Confusional state [Unknown]
  - Hot flush [Unknown]
  - Eyelid ptosis [Unknown]
  - Electrocardiogram abnormal [Unknown]
  - Oedema peripheral [Unknown]
  - Headache [Unknown]
  - Vertigo [Unknown]
  - Nausea [Unknown]
  - Alopecia [Unknown]
  - Product dose omission issue [Unknown]

NARRATIVE: CASE EVENT DATE: 20221122
